FAERS Safety Report 10198001 (Version 1)
Quarter: 2014Q2

REPORT INFORMATION
  Report Type: Report from Study
  Country: US (occurrence: US)
  Receive Date: 20140527
  Receipt Date: 20140527
  Transmission Date: 20141212
  Serious: Yes (Hospitalization)
  Sender: FDA-Public Use
  Company Number: US-ABBVIE-14P-163-1239110-00

PATIENT
  Sex: Female

DRUGS (2)
  1. CREON [Suspect]
     Indication: CYSTIC FIBROSIS
     Dates: start: 199705
  2. CREON [Suspect]
     Indication: PANCREATIC INSUFFICIENCY

REACTIONS (1)
  - Forced expiratory volume abnormal [Unknown]
